FAERS Safety Report 9203680 (Version 1)
Quarter: 2013Q1

REPORT INFORMATION
  Report Type: Spontaneous
  Country: US (occurrence: None)
  Receive Date: 20130329
  Receipt Date: 20130329
  Transmission Date: 20140127
  Serious: Yes (Other)
  Sender: FDA-Public Use
  Company Number: None

PATIENT
  Sex: Female
  Weight: 65.77 kg

DRUGS (1)
  1. SIMVASTATIN [Suspect]
     Indication: BLOOD CHOLESTEROL INCREASED
     Dosage: 40MG ONCE DAILY PO
     Route: 048
     Dates: start: 20091116, end: 20130328

REACTIONS (5)
  - Myalgia [None]
  - Back pain [None]
  - Loss of control of legs [None]
  - Gait disturbance [None]
  - Activities of daily living impaired [None]
